FAERS Safety Report 13753562 (Version 11)
Quarter: 2017Q4

REPORT INFORMATION
  Report Type: Report from Study
  Country: GB (occurrence: GB)
  Receive Date: 20170714
  Receipt Date: 20171103
  Transmission Date: 20180320
  Serious: Yes (Other)
  Sender: FDA-Public Use
  Company Number: GB-ROCHE-1958630

PATIENT
  Age: 34 Year
  Sex: Female
  Weight: 92.3 kg

DRUGS (32)
  1. PARACETAMOL [Concomitant]
     Active Substance: ACETAMINOPHEN
     Indication: INFUSION RELATED REACTION
     Dosage: START TIME: 12:23, STOP TIME: 12:24, PREMEDICATION
     Route: 048
     Dates: start: 20161206, end: 20161206
  2. PARACETAMOL [Concomitant]
     Active Substance: ACETAMINOPHEN
     Dosage: START TIME: 08:57, STOP TIME: 08:58
     Route: 048
     Dates: start: 20161220, end: 20161220
  3. PARACETAMOL [Concomitant]
     Active Substance: ACETAMINOPHEN
     Dosage: START TIME: 10:33, STOP TIME: 10.34
     Route: 048
     Dates: start: 20171023, end: 20171023
  4. METHYLPREDNISOLONE. [Suspect]
     Active Substance: METHYLPREDNISOLONE
     Indication: PREMEDICATION
     Route: 042
     Dates: start: 20161206, end: 20161206
  5. MODAFINIL. [Concomitant]
     Active Substance: MODAFINIL
     Route: 048
     Dates: start: 201510
  6. NAPROXEN. [Concomitant]
     Active Substance: NAPROXEN
     Indication: NEURALGIA
     Dosage: DOSE: 2 TABLETS
     Route: 048
     Dates: start: 20170118, end: 20170203
  7. CHLORPHENIRAMINE. [Concomitant]
     Active Substance: CHLORPHENIRAMINE
     Dosage: START TIME: 12:23, STOP TOME: 12:24, PREMEDICATION
     Route: 048
     Dates: start: 20161206, end: 20161206
  8. CHLORPHENIRAMINE. [Concomitant]
     Active Substance: CHLORPHENIRAMINE
     Dosage: START TIME: 08:57, STOP TOME: 08:58
     Route: 048
     Dates: start: 20161220, end: 20161220
  9. CLOTRIMAZOLE. [Concomitant]
     Active Substance: CLOTRIMAZOLE
     Indication: VULVOVAGINAL CANDIDIASIS
     Route: 061
     Dates: start: 20170709, end: 20170711
  10. FLUCONAZOLE. [Concomitant]
     Active Substance: FLUCONAZOLE
     Indication: VULVOVAGINAL CANDIDIASIS
     Route: 048
     Dates: start: 20170709, end: 20170709
  11. FLUOXETINE [Concomitant]
     Active Substance: FLUOXETINE HYDROCHLORIDE
     Route: 048
     Dates: start: 201508
  12. PARACETAMOL [Concomitant]
     Active Substance: ACETAMINOPHEN
     Dosage: START TIME: 10:44, STOP TIME: 10:45
     Route: 048
     Dates: start: 20170522, end: 20170522
  13. NAPROXEN. [Concomitant]
     Active Substance: NAPROXEN
     Indication: MUSCLE SPASMS
  14. PARAMOL (DIHYDROCODEINE BITARTRATE/PARACETAMOL) [Concomitant]
     Active Substance: ACETAMINOPHEN\DIHYDROCODEINE BITARTRATE
     Indication: HEADACHE
     Route: 048
     Dates: start: 20161207, end: 20161207
  15. PROPRANOLOL [Concomitant]
     Active Substance: PROPRANOLOL HYDROCHLORIDE
     Route: 048
     Dates: start: 20170415
  16. OTRIVINE [Concomitant]
     Active Substance: XYLOMETAZOLINE HYDROCHLORIDE
     Route: 065
     Dates: start: 20161225
  17. PARACETAMOL [Concomitant]
     Active Substance: ACETAMINOPHEN
     Route: 048
     Dates: start: 20161213, end: 20161213
  18. CLARITHROMYCINE [Concomitant]
     Active Substance: CLARITHROMYCIN
     Route: 048
     Dates: start: 20170707, end: 20170712
  19. PROPRANOLOL [Concomitant]
     Active Substance: PROPRANOLOL HYDROCHLORIDE
     Indication: PANIC ATTACK
     Route: 048
     Dates: start: 20170118, end: 20170130
  20. ONDANSETRON [Concomitant]
     Active Substance: ONDANSETRON
     Indication: INFUSION RELATED REACTION
  21. CHLORPHENIRAMINE. [Concomitant]
     Active Substance: CHLORPHENIRAMINE
     Dosage: START TIME: 10:33, STOP TOME:10:34
     Route: 048
     Dates: start: 20171023, end: 20171023
  22. OTRIVINE [Concomitant]
     Active Substance: XYLOMETAZOLINE HYDROCHLORIDE
     Dosage: SPRAY PER NOSTRIL
     Route: 065
     Dates: start: 20161225, end: 201702
  23. OCRELIZUMAB. [Suspect]
     Active Substance: OCRELIZUMAB
     Indication: RELAPSING-REMITTING MULTIPLE SCLEROSIS
     Dosage: FIRST DOSE 300 MG INFUSION ON DAY 1 (AS PER PROTOCOL), VISIT 2
     Route: 042
     Dates: start: 20161206, end: 20161206
  24. OCRELIZUMAB. [Suspect]
     Active Substance: OCRELIZUMAB
     Dosage: 300 MG INFUSION ON DAY 15
     Route: 042
     Dates: start: 20161220, end: 20161220
  25. HYDROXOCOBALAMIN [Concomitant]
     Active Substance: HYDROXOCOBALAMIN
     Dosage: DOSE: 3 TABLET,?VITAMIN B12 SUPPLEMENTATION
     Route: 048
     Dates: start: 201609
  26. CHLORPHENAMINE MALEATE [Concomitant]
     Active Substance: CHLORPHENIRAMINE MALEATE
     Dosage: START TIME: 10:44, STOP TIME: 10:45, PREMEDICATION
     Route: 065
     Dates: start: 20170522, end: 20170522
  27. OCRELIZUMAB. [Suspect]
     Active Substance: OCRELIZUMAB
     Dosage: DAY 1 SECOND HALF DOSING
     Route: 042
     Dates: start: 20161212, end: 20161212
  28. METHYLPREDNISOLONE. [Suspect]
     Active Substance: METHYLPREDNISOLONE
     Route: 042
     Dates: start: 20171023, end: 20171023
  29. ONDANSETRON [Concomitant]
     Active Substance: ONDANSETRON
     Indication: NAUSEA
     Route: 048
     Dates: start: 20161206, end: 20161206
  30. OCRELIZUMAB. [Suspect]
     Active Substance: OCRELIZUMAB
     Dosage: DATE OF MOST RECENT DOSE OF OCRELIZUMAB 600 MG PRIOR TO EVENT ONSET: 20/DEC/2016?ONE 600 MG INFUSION
     Route: 042
     Dates: start: 20170522
  31. METHYLPREDNISOLONE. [Suspect]
     Active Substance: METHYLPREDNISOLONE
     Dosage: DATE OF MOST RECENT DOSE OF METHYLPREDNISOLONE PRIOR TO EVENT ONSET: 20 DEC 2016
     Route: 042
     Dates: start: 20161220, end: 20161220
  32. METHYLPREDNISOLONE. [Suspect]
     Active Substance: METHYLPREDNISOLONE
     Route: 042
     Dates: start: 20170522, end: 20170522

REACTIONS (1)
  - Nasal ulcer [Recovered/Resolved]

NARRATIVE: CASE EVENT DATE: 20170106
